FAERS Safety Report 8021222-7 (Version None)
Quarter: 2011Q4

REPORT INFORMATION
  Report Type: 
  Country: None (occurrence: None)
  Receive Date: 20111229
  Receipt Date: 20111218
  Transmission Date: 20120403
  Serious: Yes (Other)
  Sender: FDA-Public Use
  Company Number: 2011-5175

PATIENT
  Age: 54 Year
  Sex: Female
  Weight: 60 kg

DRUGS (3)
  1. DYSPORT [Suspect]
     Indication: SKIN WRINKLING
     Dosage: 120;46 UNITS (120 UNITS, SINGLE CYCLE)
     Dates: start: 20110908, end: 20110908
  2. DYSPORT [Suspect]
     Indication: SKIN WRINKLING
     Dosage: 120;46 UNITS (120 UNITS, SINGLE CYCLE)
     Dates: start: 20110901, end: 20110901
  3. ABOBOTULINUMTOXIN A [Suspect]

REACTIONS (4)
  - DRUG INEFFECTIVE [None]
  - LOCAL SWELLING [None]
  - EYE SWELLING [None]
  - SOFT TISSUE MASS [None]
